FAERS Safety Report 19927983 (Version 1)
Quarter: 2021Q4

REPORT INFORMATION
  Report Type: Spontaneous
  Country: US (occurrence: US)
  Receive Date: 20211006
  Receipt Date: 20211006
  Transmission Date: 20220303
  Serious: Yes (Other)
  Sender: FDA-Public Use
  Company Number: None

PATIENT
  Age: 72 Year
  Sex: Male

DRUGS (9)
  1. FOSAPREPITANT [Suspect]
     Active Substance: FOSAPREPITANT
     Indication: Nausea
     Route: 042
     Dates: start: 20210915, end: 20211006
  2. FOSAPREPITANT [Suspect]
     Active Substance: FOSAPREPITANT
     Indication: Vomiting
  3. Dexamethasone 12 mg [Concomitant]
  4. FAMOTIDINE [Concomitant]
     Active Substance: FAMOTIDINE
  5. LORAZEPAM [Concomitant]
     Active Substance: LORAZEPAM
  6. Palonosetron 0.25 mg [Concomitant]
  7. CISPLATIN [Concomitant]
     Active Substance: CISPLATIN
  8. Magnesium sulfate 2000 mg [Concomitant]
  9. Potassium Chloride 20 mEq [Concomitant]

REACTIONS (3)
  - Back pain [None]
  - Erythema [None]
  - Infusion related reaction [None]

NARRATIVE: CASE EVENT DATE: 20211006
